FAERS Safety Report 24646793 (Version 1)
Quarter: 2024Q4

REPORT INFORMATION
  Report Type: Spontaneous
  Country: ES (occurrence: ES)
  Receive Date: 20241121
  Receipt Date: 20241121
  Transmission Date: 20250114
  Serious: Yes (Other)
  Sender: HIKMA
  Company Number: ES-HIKMA PHARMACEUTICALS-ES-H14001-24-10561

PATIENT
  Age: 70 Year
  Sex: Male

DRUGS (3)
  1. BAVENCIO [Suspect]
     Active Substance: AVELUMAB
     Indication: Transitional cell carcinoma
     Dosage: 10 MILLIGRAM/KILOGRAM, SINGLE
     Route: 042
     Dates: start: 20240801, end: 20240801
  2. GEMCITABINE [Suspect]
     Active Substance: GEMCITABINE
     Indication: Transitional cell carcinoma
     Dosage: 1000 MILLIGRAM/SQ. METER
     Route: 042
     Dates: start: 20240405, end: 20240703
  3. CISPLATIN [Concomitant]
     Active Substance: CISPLATIN
     Indication: Transitional cell carcinoma
     Dosage: 50 MILLIGRAM/SQ. METER
     Route: 042
     Dates: start: 20240405, end: 20240703

REACTIONS (1)
  - Interstitial lung disease [Not Recovered/Not Resolved]

NARRATIVE: CASE EVENT DATE: 20240808
